FAERS Safety Report 9335014 (Version 1)
Quarter: 2013Q2

REPORT INFORMATION
  Report Type: Spontaneous
  Country: US (occurrence: US)
  Receive Date: 20130606
  Receipt Date: 20130606
  Transmission Date: 20140414
  Serious: Yes (Hospitalization, Disabling)
  Sender: FDA-Public Use
  Company Number: US-PFIZER INC-2013170995

PATIENT
  Age: 60 Year
  Sex: Male
  Weight: 88.44 kg

DRUGS (4)
  1. LYRICA [Suspect]
     Indication: DIABETIC NEUROPATHY
     Dosage: 75 MG, 1X/DAY
     Dates: start: 201106
  2. LEVEMIR [Concomitant]
     Indication: TYPE 2 DIABETES MELLITUS
     Dosage: 14 UNITS, 2X/DAY
  3. NOVOLOG [Concomitant]
     Indication: TYPE 2 DIABETES MELLITUS
     Dosage: UNK, AS NEEDED
  4. LABETALOL [Concomitant]
     Indication: HYPERTENSION
     Dosage: 200 MG, 1X/DAY

REACTIONS (1)
  - Pancreatitis necrotising [Unknown]
